FAERS Safety Report 8918761 (Version 2)
Quarter: 2016Q4

REPORT INFORMATION
  Report Type: Spontaneous
  Country: US (occurrence: US)
  Receive Date: 20121120
  Receipt Date: 20161117
  Transmission Date: 20170207
  Serious: Yes (Hospitalization, Other)
  Sender: FDA-Public Use
  Company Number: US-ASTRAZENECA-2012SE20775

PATIENT
  Age: 30407 Day
  Sex: Male
  Weight: 186 kg

DRUGS (8)
  1. MEMANTINE. [Concomitant]
     Active Substance: MEMANTINE
     Indication: DEMENTIA
  2. BABY ASPIRIN [Concomitant]
     Active Substance: ASPIRIN
  3. NEXIUM [Suspect]
     Active Substance: ESOMEPRAZOLE MAGNESIUM
     Indication: BARRETT^S OESOPHAGUS
     Route: 048
  4. CLOPIDOGREL PLAVIX [Concomitant]
     Indication: CEREBROVASCULAR ACCIDENT
  5. NEXIUM [Suspect]
     Active Substance: ESOMEPRAZOLE MAGNESIUM
     Indication: BARRETT^S OESOPHAGUS
     Dosage: 40 MG DAILY, GENERIC
     Route: 048
  6. LIPITOR [Concomitant]
     Active Substance: ATORVASTATIN CALCIUM
     Indication: DEMENTIA
  7. RAMIPRIL. [Concomitant]
     Active Substance: RAMIPRIL
     Indication: BLOOD PRESSURE ABNORMAL
  8. AMLODIPINE BESYLATE. [Concomitant]
     Active Substance: AMLODIPINE BESYLATE
     Indication: BLOOD PRESSURE ABNORMAL

REACTIONS (18)
  - Bacterial infection [Unknown]
  - Anosmia [Unknown]
  - Cerebrovascular accident [Unknown]
  - Dementia [Unknown]
  - Decreased appetite [Unknown]
  - Dysgeusia [Unknown]
  - Transient ischaemic attack [Unknown]
  - Off label use [Unknown]
  - Drug ineffective [Unknown]
  - Skin disorder [Unknown]
  - Blood pressure increased [Unknown]
  - Body height decreased [Unknown]
  - Intentional product use issue [Unknown]
  - Product use issue [Unknown]
  - Dysphagia [Unknown]
  - Gastrooesophageal reflux disease [Unknown]
  - Scar [Unknown]
  - Mitral valve prolapse [Unknown]

NARRATIVE: CASE EVENT DATE: 201610
